FAERS Safety Report 7790599-X (Version None)
Quarter: 2011Q3

REPORT INFORMATION
  Report Type: 
  Country: None (occurrence: None)
  Receive Date: 20110930
  Receipt Date: 20110404
  Transmission Date: 20111222
  Serious: No
  Sender: FDA-Public Use
  Company Number: US-BAYER-2011-029559

PATIENT
  Sex: Female

DRUGS (2)
  1. CIPROFLOXACIN [Suspect]
     Dosage: 750 MG, BID
  2. CIPROFLOXACIN [Suspect]
     Dosage: 500 MG, BID

REACTIONS (4)
  - HEADACHE [None]
  - VISUAL IMPAIRMENT [None]
  - HYPERSENSITIVITY [None]
  - NAUSEA [None]
